FAERS Safety Report 10332872 (Version 2)
Quarter: 2014Q3

REPORT INFORMATION
  Report Type: Report from Study
  Country: US (occurrence: US)
  Receive Date: 20140722
  Receipt Date: 20140722
  Transmission Date: 20150326
  Serious: Yes (Other)
  Sender: FDA-Public Use
  Company Number: PHEH2014US011435

PATIENT
  Age: 45 Year
  Sex: Female
  Weight: 68.27 kg

DRUGS (1)
  1. GILENYA [Suspect]
     Active Substance: FINGOLIMOD HYDROCHLORIDE
     Indication: MULTIPLE SCLEROSIS
     Dosage: 0.5 MG, QD
     Route: 048
     Dates: start: 20140415

REACTIONS (11)
  - Retching [Unknown]
  - Blood glucose increased [Unknown]
  - Insomnia [Unknown]
  - Memory impairment [Not Recovered/Not Resolved]
  - Breast mass [Unknown]
  - Breast pain [Unknown]
  - Vomiting [Unknown]
  - Movement disorder [Unknown]
  - Dysphagia [Recovered/Resolved]
  - Pain in extremity [Recovered/Resolved]
  - Stress [Unknown]

NARRATIVE: CASE EVENT DATE: 20140707
